FAERS Safety Report 17485017 (Version 1)
Quarter: 2020Q1

REPORT INFORMATION
  Report Type: Report from Study
  Country: GB (occurrence: GB)
  Receive Date: 20200302
  Receipt Date: 20200302
  Transmission Date: 20200409
  Serious: Yes (Other)
  Sender: FDA-Public Use
  Company Number: NVSC2020GB056996

PATIENT
  Age: 63 Year
  Sex: Female

DRUGS (1)
  1. SANDOSTATIN LAR DEPOT [Suspect]
     Active Substance: OCTREOTIDE ACETATE
     Indication: NEUROENDOCRINE TUMOUR
     Dosage: 30 MG, QMO {ONCE A MONTH} {DRY POWDER}
     Route: 030
     Dates: start: 20180527

REACTIONS (4)
  - Feeling abnormal [Unknown]
  - Diarrhoea [Unknown]
  - Gastroenteritis [Unknown]
  - Flushing [Unknown]

NARRATIVE: CASE EVENT DATE: 20200201
